FAERS Safety Report 10053731 (Version 2)
Quarter: 2014Q4

REPORT INFORMATION
  Report Type: Spontaneous
  Country: FR (occurrence: FR)
  Receive Date: 20140402
  Receipt Date: 20141007
  Transmission Date: 20150528
  Serious: Yes (Hospitalization)
  Sender: FDA-Public Use
  Company Number: FR-PFIZER INC-2014088151

PATIENT
  Age: 25 Year
  Sex: Male

DRUGS (6)
  1. LEDERFOLIN [Concomitant]
     Active Substance: LEUCOVORIN CALCIUM
     Dosage: 1 DF, 1X/DAY
     Route: 048
  2. URBANYL [Concomitant]
     Active Substance: CLOBAZAM
     Dosage: 20 MG, 1X/DAY
     Route: 048
  3. CLINDAMYCIN [Suspect]
     Active Substance: CLINDAMYCIN\CLINDAMYCIN PHOSPHATE
     Indication: MENINGITIS ASEPTIC
     Dosage: 300 MG, 1X/DAY
     Route: 048
     Dates: start: 201111, end: 20120309
  4. MALOCIDE [Suspect]
     Active Substance: PYRIMETHAMINE
     Indication: MENINGITIS ASEPTIC
     Dosage: 75 MG, 1X/DAY
     Route: 048
     Dates: start: 20120217, end: 20120309
  5. KEPPRA [Suspect]
     Active Substance: LEVETIRACETAM
     Dosage: 500 MG, 2X/DAY
     Route: 048
     Dates: start: 201109, end: 20120313
  6. ATRIPLA [Concomitant]
     Active Substance: EFAVIRENZ\EMTRICITABINE\TENOFOVIR DISOPROXIL FUMARATE
     Dosage: 1 DF, 1X/DAY
     Route: 048
     Dates: start: 20100709

REACTIONS (3)
  - Pancytopenia [Recovered/Resolved]
  - Bone marrow failure [Recovered/Resolved]
  - Seizure [Recovered/Resolved]

NARRATIVE: CASE EVENT DATE: 20120308
